FAERS Safety Report 6091744-7 (Version None)
Quarter: 2009Q1

REPORT INFORMATION
  Report Type: 
  Country: None (occurrence: None)
  Receive Date: 20090225
  Receipt Date: 20080513
  Transmission Date: 20090719
  Serious: No
  Sender: FDA-Public Use
  Company Number: A0727701A

PATIENT
  Age: 57 Year
  Sex: Male

DRUGS (2)
  1. VALTREX [Suspect]
     Route: 048
     Dates: start: 20080509
  2. NAPROXEN [Concomitant]

REACTIONS (3)
  - ABDOMINAL PAIN [None]
  - CHEST PAIN [None]
  - DRUG INEFFECTIVE [None]
